FAERS Safety Report 4753509-5 (Version None)
Quarter: 2005Q3

REPORT INFORMATION
  Report Type: 
  Country: None (occurrence: None)
  Receive Date: 20050824
  Receipt Date: 20050812
  Transmission Date: 20060218
  Serious: Yes (Hospitalization)
  Sender: FDA-Public Use
  Company Number: GB-YAMANOUCHI-YEHQ20050911

PATIENT
  Age: 73 Year
  Sex: Male

DRUGS (7)
  1. VESICARE [Suspect]
     Indication: URINARY INCONTINENCE
     Dosage: 5 MG DAILY PO
     Route: 048
     Dates: start: 20050726
  2. DETROL [Concomitant]
  3. SIMVASTATIN [Concomitant]
  4. PHENYTOIN [Concomitant]
  5. PRIMIDONE [Concomitant]
  6. ISOSORBIDE MONONITRATE [Concomitant]
  7. ASPIRIN [Concomitant]

REACTIONS (1)
  - EPILEPSY [None]
